FAERS Safety Report 14099988 (Version 1)
Quarter: 2017Q4

REPORT INFORMATION
  Report Type: Spontaneous
  Country: AT (occurrence: AT)
  Receive Date: 20171017
  Receipt Date: 20171017
  Transmission Date: 20180321
  Serious: Yes (Hospitalization)
  Sender: FDA-Public Use
  Company Number: AT-MERCK KGAA-2030384

PATIENT
  Sex: Female

DRUGS (2)
  1. COMBITHYREX [Concomitant]
     Active Substance: LEVOTHYROXINE SODIUM\LIOTHYRONINE SODIUM
  2. NOVOTHYROX [Suspect]
     Active Substance: LEVOTHYROXINE SODIUM
     Indication: PRODUCT USED FOR UNKNOWN INDICATION
     Dates: start: 201708

REACTIONS (3)
  - Hypertension [Unknown]
  - Cardiovascular disorder [Unknown]
  - Tachycardia [Unknown]

NARRATIVE: CASE EVENT DATE: 20170928
